FAERS Safety Report 16291091 (Version 1)
Quarter: 2019Q2

REPORT INFORMATION
  Report Type: Spontaneous
  Country: US (occurrence: US)
  Receive Date: 20190404
  Receipt Date: 20190404
  Transmission Date: 20190711
  Serious: No
  Sender: FDA-Public Use
  Company Number: None

PATIENT
  Age: 64 Year
  Sex: Female
  Weight: 51.71 kg

DRUGS (2)
  1. TALTZ [Suspect]
     Active Substance: IXEKIZUMAB
     Indication: PSORIASIS
     Dosage: INJECT 160MG (2 SYRINGES) SUBCUTANEOUSLY  AT WEEK 0 THEN 80MG (1 SYRINGE)  EVERY 4 WEEKS AS DIRECTED
     Route: 058
     Dates: start: 201902
  2. TALTZ [Suspect]
     Active Substance: IXEKIZUMAB
     Indication: RHEUMATOID ARTHRITIS
     Dosage: INJECT 160MG (2 SYRINGES) SUBCUTANEOUSLY  AT WEEK 0 THEN 80MG (1 SYRINGE)  EVERY 4 WEEKS AS DIRECTED
     Route: 058
     Dates: start: 201902

REACTIONS (1)
  - Hypersensitivity [None]
